FAERS Safety Report 8584028-6 (Version None)
Quarter: 2012Q3

REPORT INFORMATION
  Report Type: 
  Country: None (occurrence: None)
  Receive Date: 20120810
  Receipt Date: 20120726
  Transmission Date: 20120928
  Serious: Yes (Other)
  Sender: FDA-Public Use
  Company Number: US-009507513-1207USA011552

PATIENT

DRUGS (3)
  1. REBETOL [Suspect]
  2. VICTRELIS [Suspect]
  3. PEGASYS [Suspect]

REACTIONS (4)
  - WHITE BLOOD CELL COUNT DECREASED [None]
  - DIARRHOEA [None]
  - ANAEMIA [None]
  - DYSGEUSIA [None]
